FAERS Safety Report 4346723-4 (Version None)
Quarter: 2004Q1

REPORT INFORMATION
  Report Type: 
  Country: None (occurrence: None)
  Receive Date: 20040329
  Receipt Date: 20031216
  Transmission Date: 20041129
  Serious: No
  Sender: FDA-Public Use
  Company Number: USA031253916

PATIENT
  Age: 17 Year
  Sex: Male
  Weight: 86 kg

DRUGS (4)
  1. STRATTERA [Suspect]
     Indication: ATTENTION DEFICIT/HYPERACTIVITY DISORDER
     Dosage: 25 MG/IN THE MORNING
     Dates: start: 20031203
  2. COENZYME Q10 [Concomitant]
  3. VITAMIN C [Concomitant]
  4. MULTIVITAMINS NOS (MULTIVITAMINS NOS) [Concomitant]

REACTIONS (6)
  - EPISTAXIS [None]
  - FATIGUE [None]
  - FEELING ABNORMAL [None]
  - HEADACHE [None]
  - PHARYNGOLARYNGEAL PAIN [None]
  - PULSE PRESSURE INCREASED [None]
